FAERS Safety Report 7493788-7 (Version None)
Quarter: 2011Q2

REPORT INFORMATION
  Report Type: 
  Country: None (occurrence: None)
  Receive Date: 20110520
  Receipt Date: 20110128
  Transmission Date: 20111010
  Serious: No
  Sender: FDA-Public Use
  Company Number: US-ASTRAZENECA-2011SE05156

PATIENT
  Age: 32 Year
  Sex: Female
  Weight: 63.5 kg

DRUGS (4)
  1. CARISOPRODOL [Concomitant]
  2. HYDROCODONE [Concomitant]
     Indication: PAIN
  3. PLAQUENIL [Concomitant]
  4. VIMOVO [Suspect]
     Dosage: 375 MG/ 20 MG
     Route: 048
     Dates: start: 20110101, end: 20110101

REACTIONS (1)
  - BURNING SENSATION [None]
